FAERS Safety Report 5772954-2 (Version None)
Quarter: 2008Q2

REPORT INFORMATION
  Report Type: 
  Country: None (occurrence: None)
  Receive Date: 20080613
  Receipt Date: 20080603
  Transmission Date: 20081010
  Serious: Yes (Other)
  Sender: FDA-Public Use
  Company Number: US-PFIZER INC-2008047298

PATIENT
  Sex: Female
  Weight: 54.545 kg

DRUGS (3)
  1. CHANTIX [Suspect]
     Indication: SMOKING CESSATION THERAPY
     Route: 048
  2. MELATONIN [Concomitant]
  3. IBUROFEN [Concomitant]

REACTIONS (11)
  - ANOREXIA [None]
  - CONFUSIONAL STATE [None]
  - CRYING [None]
  - DECREASED APPETITE [None]
  - DISORIENTATION [None]
  - DYSARTHRIA [None]
  - FOOD INTOLERANCE [None]
  - PSYCHOTIC DISORDER [None]
  - SLEEP DISORDER [None]
  - SPEECH DISORDER [None]
  - WEIGHT DECREASED [None]
